FAERS Safety Report 8182323-6 (Version None)
Quarter: 2012Q1

REPORT INFORMATION
  Report Type: 
  Country: None (occurrence: None)
  Receive Date: 20120302
  Receipt Date: 20120229
  Transmission Date: 20120608
  Serious: No
  Sender: FDA-Public Use
  Company Number: PHEH2012US004478

PATIENT
  Sex: Female

DRUGS (2)
  1. DIOVAN HCT [Suspect]
     Dosage: 1 DF (160/25 MG) QD
  2. JANUMET [Concomitant]
     Dosage: UNK UKN, UNK

REACTIONS (2)
  - INFLUENZA [None]
  - NASOPHARYNGITIS [None]
